FAERS Safety Report 5678055-6 (Version None)
Quarter: 2008Q1

REPORT INFORMATION
  Report Type: 
  Country: None (occurrence: None)
  Receive Date: 20080319
  Receipt Date: 20080226
  Transmission Date: 20080703
  Serious: Yes (Hospitalization)
  Sender: FDA-Public Use
  Company Number: 2008S1003348

PATIENT
  Age: 13 Year
  Sex: Female

DRUGS (2)
  1. DIPYRONE (METAMIZOLE SODIUM) [Suspect]
     Indication: DYSMENORRHOEA
     Dosage: 5000 MG;DAILY
  2. ACETAMINOPHEN [Suspect]
     Indication: DYSMENORRHOEA
     Dosage: 1500 MG;DAILY

REACTIONS (5)
  - ARTHRALGIA [None]
  - FLANK PAIN [None]
  - FLUID INTAKE REDUCED [None]
  - MYALGIA [None]
  - RENAL FAILURE ACUTE [None]
